FAERS Safety Report 6479204-2 (Version None)
Quarter: 2009Q4

REPORT INFORMATION
  Report Type: 
  Country: None (occurrence: None)
  Receive Date: 20091207
  Receipt Date: 20090224
  Transmission Date: 20100525
  Serious: No
  Sender: FDA-Public Use
  Company Number: US-AMGEN-KDL334240

PATIENT
  Sex: Female
  Weight: 85.4 kg

DRUGS (8)
  1. ENBREL [Suspect]
     Indication: RHEUMATOID ARTHRITIS
     Route: 058
     Dates: start: 20050101, end: 20090206
  2. METHOTREXATE [Concomitant]
     Route: 048
  3. PREDNISONE [Concomitant]
  4. CELEBREX [Concomitant]
     Dates: end: 20090116
  5. ZOCOR [Concomitant]
     Dates: end: 20090116
  6. NEXIUM [Concomitant]
  7. CALCIUM [Concomitant]
  8. VITAMIN E [Concomitant]

REACTIONS (9)
  - CHILLS [None]
  - INJECTION SITE PAIN [None]
  - INJECTION SITE PRURITUS [None]
  - INJECTION SITE SWELLING [None]
  - JOINT EFFUSION [None]
  - MOBILITY DECREASED [None]
  - MUSCULOSKELETAL PAIN [None]
  - MYALGIA [None]
  - PAIN IN EXTREMITY [None]
